FAERS Safety Report 8111811-3 (Version None)
Quarter: 2012Q1

REPORT INFORMATION
  Report Type: 
  Country: None (occurrence: None)
  Receive Date: 20120202
  Receipt Date: 20120202
  Transmission Date: 20120608
  Serious: Yes (Disabling, Other)
  Sender: FDA-Public Use
  Company Number: None

PATIENT
  Age: 62 Year
  Sex: Male
  Weight: 99.7913 kg

DRUGS (1)
  1. AVODART [Suspect]
     Indication: BENIGN PROSTATIC HYPERPLASIA
     Dosage: .5MG 1 PER DAY MOUTH
     Route: 048
     Dates: end: 20110515

REACTIONS (3)
  - VERTIGO [None]
  - FEELING ABNORMAL [None]
  - UNEVALUABLE EVENT [None]
